FAERS Safety Report 5962363-5 (Version None)
Quarter: 2008Q4

REPORT INFORMATION
  Report Type: 
  Country: None (occurrence: None)
  Receive Date: 20081121
  Receipt Date: 20081112
  Transmission Date: 20090506
  Serious: Yes (Other)
  Sender: FDA-Public Use
  Company Number: US-ABBOTT-08P-163-0487991-00

PATIENT
  Sex: Female
  Weight: 54.48 kg

DRUGS (9)
  1. HUMIRA [Suspect]
     Indication: CROHN'S DISEASE
     Route: 058
     Dates: start: 20070801, end: 20070911
  2. HUMIRA [Suspect]
     Route: 058
     Dates: start: 20080804
  3. HUMIRA [Suspect]
     Route: 058
     Dates: start: 20080917
  4. AZATHIOPRINE [Concomitant]
     Indication: DRUG USE FOR UNKNOWN INDICATION
     Route: 048
  5. MESALAMINE [Concomitant]
     Indication: DRUG USE FOR UNKNOWN INDICATION
     Route: 048
  6. LORAZEPAM [Concomitant]
     Indication: DRUG USE FOR UNKNOWN INDICATION
     Route: 048
  7. BENADRYL [Concomitant]
     Indication: DRUG USE FOR UNKNOWN INDICATION
     Route: 048
  8. MUSCLE RELAXANTS [Concomitant]
     Indication: DRUG USE FOR UNKNOWN INDICATION
     Route: 048
  9. NAPROXEN [Concomitant]
     Indication: DRUG USE FOR UNKNOWN INDICATION
     Dosage: TWICE DAILY, AS NEEDED
     Route: 048

REACTIONS (30)
  - ABDOMINAL PAIN [None]
  - ARTHRALGIA [None]
  - BLISTER [None]
  - BONE PAIN [None]
  - BURNING SENSATION [None]
  - CHEST DISCOMFORT [None]
  - COLECTOMY [None]
  - DIARRHOEA [None]
  - DIPLOPIA [None]
  - FEELING ABNORMAL [None]
  - GROIN PAIN [None]
  - HALLUCINATION [None]
  - HYPOAESTHESIA [None]
  - HYPOKALAEMIA [None]
  - INFLUENZA LIKE ILLNESS [None]
  - LOSS OF CONSCIOUSNESS [None]
  - MALAISE [None]
  - MEDIAL TIBIAL STRESS SYNDROME [None]
  - MUSCLE SPASMS [None]
  - MUSCULAR WEAKNESS [None]
  - MUSCULOSKELETAL CHEST PAIN [None]
  - NAUSEA [None]
  - PARAESTHESIA [None]
  - PELVIC PAIN [None]
  - PHOTOPHOBIA [None]
  - POST PROCEDURAL INFECTION [None]
  - PYREXIA [None]
  - SECRETION DISCHARGE [None]
  - SENSATION OF HEAVINESS [None]
  - SENSORY DISTURBANCE [None]
